FAERS Safety Report 6436304-0 (Version None)
Quarter: 2009Q4

REPORT INFORMATION
  Report Type: 
  Country: None (occurrence: None)
  Receive Date: 20091111
  Receipt Date: 20091105
  Transmission Date: 20100525
  Serious: Yes (Other)
  Sender: FDA-Public Use
  Company Number: B0585737A

PATIENT
  Sex: Male
  Weight: 29.8 kg

DRUGS (6)
  1. ZOFRAN [Suspect]
     Indication: VOMITING
     Dosage: 5ML PER DAY
     Route: 048
     Dates: start: 20090501, end: 20090711
  2. EPILIM [Concomitant]
     Dosage: 5ML TWICE PER DAY
     Route: 065
  3. LOSEC [Concomitant]
     Dosage: 20MG TWICE PER DAY
     Route: 065
  4. MELATONIN [Concomitant]
     Route: 065
  5. DUPHALAC [Concomitant]
  6. LACTULOSE [Concomitant]
     Indication: CONSTIPATION
     Dosage: 20ML PER DAY
     Route: 065

REACTIONS (8)
  - DIARRHOEA [None]
  - DROOLING [None]
  - DYSPHAGIA [None]
  - EATING DISORDER [None]
  - EMOTIONAL DISTRESS [None]
  - HYPERSENSITIVITY [None]
  - LIP SWELLING [None]
  - SWOLLEN TONGUE [None]
